FAERS Safety Report 13607114 (Version 1)
Quarter: 2017Q2

REPORT INFORMATION
  Report Type: Spontaneous
  Country: GB (occurrence: GB)
  Receive Date: 20170602
  Receipt Date: 20170602
  Transmission Date: 20170830
  Serious: Yes (Other)
  Sender: FDA-Public Use
  Company Number: GB-ROCHE-1941486

PATIENT
  Age: 72 Year
  Sex: Female

DRUGS (1)
  1. PEGASYS [Suspect]
     Active Substance: PEGINTERFERON ALFA-2A
     Indication: POLYCYTHAEMIA VERA
     Route: 065
     Dates: start: 20170518

REACTIONS (19)
  - Influenza like illness [Unknown]
  - Back pain [Unknown]
  - Dry mouth [Unknown]
  - Dyspnoea [Unknown]
  - Dysphonia [Unknown]
  - Off label use [Unknown]
  - Shock [Unknown]
  - Syncope [Unknown]
  - Hypertension [Unknown]
  - Stress [Unknown]
  - Feeling abnormal [Unknown]
  - Cough [Unknown]
  - Ageusia [Unknown]
  - Anosmia [Unknown]
  - Anxiety [Unknown]
  - Skin disorder [Unknown]
  - Insomnia [Unknown]
  - Dry throat [Unknown]
  - Panic reaction [Unknown]

NARRATIVE: CASE EVENT DATE: 20170518
